FAERS Safety Report 22081756 (Version 1)
Quarter: 2023Q1

REPORT INFORMATION
  Report Type: Other
  Country: FR (occurrence: FR)
  Receive Date: 20230310
  Receipt Date: 20230310
  Transmission Date: 20230417
  Serious: Yes (Other)
  Sender: FDA-Public Use
  Company Number: None

PATIENT

DRUGS (4)
  1. SPIRONOLACTONE [Suspect]
     Active Substance: SPIRONOLACTONE
     Indication: Polycystic ovaries
     Dosage: 50 MILLIGRAM, QD
     Route: 048
  2. ESTRADIOL [Suspect]
     Active Substance: ESTRADIOL
     Indication: Polycystic ovaries
     Dosage: 20 DOSAGE FORM, 1 MONTH
     Route: 048
  3. CYPROTERONE ACETATE [Suspect]
     Active Substance: CYPROTERONE ACETATE
     Indication: Hirsutism
     Dosage: 1 DOSAGE FORM, QD
     Route: 048
     Dates: start: 1999, end: 202212
  4. ESTRADIOL [Suspect]
     Active Substance: ESTRADIOL
     Indication: Polycystic ovaries
     Dosage: 20 DOSAGE FORM, 1 MONTH
     Route: 048
     Dates: end: 202212

REACTIONS (1)
  - Meningioma [Not Recovered/Not Resolved]

NARRATIVE: CASE EVENT DATE: 20210501
